FAERS Safety Report 15463385 (Version 3)
Quarter: 2022Q4

REPORT INFORMATION
  Report Type: Other
  Country: GB (occurrence: GB)
  Receive Date: 20181004
  Receipt Date: 20221116
  Transmission Date: 20230112
  Serious: Yes (Death, Life-Threatening, Hospitalization, Disabling, Other)
  Sender: FDA-Public Use
  Company Number: GB-ASTELLAS-2018US042433

PATIENT
  Age: 76 Year
  Sex: Male

DRUGS (74)
  1. TACROLIMUS [Interacting]
     Active Substance: TACROLIMUS
     Indication: Prophylaxis against transplant rejection
     Route: 048
     Dates: start: 20100127, end: 20180131
  2. TACROLIMUS [Interacting]
     Active Substance: TACROLIMUS
     Indication: Renal transplant
     Route: 048
     Dates: start: 20180127
  3. TACROLIMUS [Interacting]
     Active Substance: TACROLIMUS
     Indication: Prophylaxis against transplant rejection
     Route: 048
     Dates: start: 20100127, end: 20180130
  4. TACROLIMUS [Interacting]
     Active Substance: TACROLIMUS
     Indication: Renal transplant
     Route: 048
  5. TACROLIMUS [Interacting]
     Active Substance: TACROLIMUS
     Route: 048
  6. TACROLIMUS [Interacting]
     Active Substance: TACROLIMUS
     Route: 048
     Dates: start: 20180128, end: 20180130
  7. TACROLIMUS [Interacting]
     Active Substance: TACROLIMUS
     Route: 065
     Dates: start: 20180128
  8. TACROLIMUS [Interacting]
     Active Substance: TACROLIMUS
     Route: 065
  9. TACROLIMUS [Interacting]
     Active Substance: TACROLIMUS
     Route: 065
  10. TACROLIMUS [Interacting]
     Active Substance: TACROLIMUS
     Route: 048
     Dates: start: 20180127
  11. TACROLIMUS [Interacting]
     Active Substance: TACROLIMUS
     Route: 048
     Dates: start: 20180127
  12. TACROLIMUS [Interacting]
     Active Substance: TACROLIMUS
     Indication: Prophylaxis against transplant rejection
     Route: 048
     Dates: start: 20180127, end: 20180131
  13. TACROLIMUS [Interacting]
     Active Substance: TACROLIMUS
     Indication: Renal transplant
     Route: 065
  14. TACROLIMUS [Interacting]
     Active Substance: TACROLIMUS
     Dosage: 27 MG, EVERY 5 DAYS
     Route: 065
  15. TACROLIMUS [Interacting]
     Active Substance: TACROLIMUS
     Dosage: UNK UNK, UNKNOWN FREQ.
     Route: 065
  16. DOXYCYCLINE [Suspect]
     Active Substance: DOXYCYCLINE
     Indication: Product used for unknown indication
     Dosage: UNK UNK, UNKNOWN FREQ.
     Route: 065
  17. OMEPRAZOLE [Suspect]
     Active Substance: OMEPRAZOLE
     Indication: Duodenal ulcer
     Dosage: 20 MG, ONCE DAILY IN MORNING
     Route: 048
  18. OMEPRAZOLE [Suspect]
     Active Substance: OMEPRAZOLE
     Dosage: 20 MG, MONTHLY (QMO)
     Route: 048
  19. OMEPRAZOLE [Suspect]
     Active Substance: OMEPRAZOLE
     Indication: Duodenal ulcer
     Dosage: 20 MG, ONCE DAILY IN MORNING
     Route: 048
  20. OMEPRAZOLE [Suspect]
     Active Substance: OMEPRAZOLE
     Route: 048
  21. CLARITHROMYCIN [Interacting]
     Active Substance: CLARITHROMYCIN
     Indication: Lower respiratory tract infection
     Dosage: UNK UNK, UNKNOWN FREQ.
     Route: 065
  22. CLARITHROMYCIN [Interacting]
     Active Substance: CLARITHROMYCIN
     Indication: Pneumonia
     Route: 042
     Dates: start: 20180127, end: 20180131
  23. CLARITHROMYCIN [Interacting]
     Active Substance: CLARITHROMYCIN
     Indication: Mediastinitis
     Route: 042
  24. CLARITHROMYCIN [Interacting]
     Active Substance: CLARITHROMYCIN
     Route: 065
  25. CLARITHROMYCIN [Interacting]
     Active Substance: CLARITHROMYCIN
     Route: 042
     Dates: start: 20180127, end: 20180131
  26. CLARITHROMYCIN [Interacting]
     Active Substance: CLARITHROMYCIN
     Route: 042
  27. CLARITHROMYCIN [Interacting]
     Active Substance: CLARITHROMYCIN
     Dosage: UNK UNK, UNKNOWN FREQ.
     Route: 065
  28. NITROGLYCERIN [Suspect]
     Active Substance: NITROGLYCERIN
     Indication: Product used for unknown indication
     Dosage: UNK UNK, UNKNOWN FREQ.
     Route: 065
  29. CEFUROXIME [Suspect]
     Active Substance: CEFUROXIME
     Indication: Product used for unknown indication
     Dosage: UNK UNK, UNKNOWN FREQ.
     Route: 065
     Dates: start: 20180131
  30. NITROGLYCERIN [Suspect]
     Active Substance: NITROGLYCERIN
     Indication: Product used for unknown indication
     Dosage: UNK UNK, UNKNOWN FREQ.
     Route: 065
  31. DEXTROSE [Suspect]
     Active Substance: DEXTROSE
     Indication: Product used for unknown indication
     Dosage: UNK UNK, UNKNOWN FREQ.
     Route: 065
  32. SENNOSIDES A AND B [Suspect]
     Active Substance: SENNOSIDES A AND B
     Indication: Product used for unknown indication
     Dosage: UNK UNK, UNKNOWN FREQ.
     Route: 065
  33. ALFACALCIDOL [Suspect]
     Active Substance: ALFACALCIDOL
     Indication: Product used for unknown indication
     Route: 048
  34. BISOPROLOL [Suspect]
     Active Substance: BISOPROLOL
     Indication: Product used for unknown indication
     Dosage: UNK UNK, UNKNOWN FREQ.
     Route: 065
  35. HYDROCORTISONE [Suspect]
     Active Substance: HYDROCORTISONE
     Indication: Product used for unknown indication
     Dosage: UNK UNK, UNKNOWN FREQ.
     Route: 065
  36. HYDROCORTISONE [Suspect]
     Active Substance: HYDROCORTISONE
     Route: 042
     Dates: start: 20180201
  37. HYDROCORTISONE [Suspect]
     Active Substance: HYDROCORTISONE
     Route: 042
     Dates: start: 20180201
  38. HYDROCORTISONE [Suspect]
     Active Substance: HYDROCORTISONE
     Route: 042
     Dates: start: 20180201
  39. HYDROCORTISONE [Suspect]
     Active Substance: HYDROCORTISONE
     Route: 042
  40. EPLERENONE [Concomitant]
     Active Substance: EPLERENONE
     Indication: Product used for unknown indication
     Route: 065
     Dates: end: 20180130
  41. EPLERENONE [Concomitant]
     Active Substance: EPLERENONE
     Route: 048
     Dates: start: 20180130
  42. EPLERENONE [Concomitant]
     Active Substance: EPLERENONE
     Dosage: 25 MG, ONCE DAILY MORNING
     Route: 048
     Dates: end: 20180130
  43. FUROSEMIDE [Concomitant]
     Active Substance: FUROSEMIDE
     Indication: Product used for unknown indication
     Dosage: 40 MG, ONCE DAILY; 12 PM
     Route: 048
  44. FUROSEMIDE [Concomitant]
     Active Substance: FUROSEMIDE
     Route: 048
  45. FUROSEMIDE [Concomitant]
     Active Substance: FUROSEMIDE
     Route: 048
     Dates: start: 20180130
  46. FUROSEMIDE [Concomitant]
     Active Substance: FUROSEMIDE
     Dosage: 120 MG (80 MG MORNING 40 MG 12 PM), ONCE DAILY
     Route: 048
  47. CHOLECALCIFEROL [Concomitant]
     Active Substance: CHOLECALCIFEROL
     Indication: Product used for unknown indication
     Dosage: 20 NG, ONCE DAILY MORNING
     Route: 048
  48. CHOLECALCIFEROL [Concomitant]
     Active Substance: CHOLECALCIFEROL
     Route: 048
  49. GLICLAZIDE [Concomitant]
     Active Substance: GLICLAZIDE
     Indication: Product used for unknown indication
     Dosage: 40 MG, ONCE DAILY MORNING
     Route: 048
  50. GLICLAZIDE [Concomitant]
     Active Substance: GLICLAZIDE
     Route: 048
  51. GLICLAZIDE [Concomitant]
     Active Substance: GLICLAZIDE
     Route: 048
  52. ALLOPURINOL SODIUM [Concomitant]
     Active Substance: ALLOPURINOL SODIUM
     Indication: Product used for unknown indication
     Route: 048
  53. PREDNISOLONE [Concomitant]
     Active Substance: PREDNISOLONE
     Indication: Product used for unknown indication
     Route: 048
  54. PREDNISOLONE [Concomitant]
     Active Substance: PREDNISOLONE
     Route: 048
     Dates: start: 20180127
  55. PREDNISOLONE [Concomitant]
     Active Substance: PREDNISOLONE
     Dosage: INCREASE PREDNISOLONE TO 10 MG FOR 5 DAYS
     Route: 065
     Dates: start: 20180127
  56. PREDNISOLONE [Concomitant]
     Active Substance: PREDNISOLONE
     Dosage: 5 MG, ONCE DAILY (AM)
     Route: 048
  57. PREDNISOLONE [Concomitant]
     Active Substance: PREDNISOLONE
     Route: 065
  58. SENNA [Concomitant]
     Active Substance: SENNA LEAF\SENNOSIDES\SENNOSIDES A AND B
     Indication: Product used for unknown indication
     Dosage: 15 MG, ONCE DAILY (PM)
     Route: 048
  59. SENNA [Concomitant]
     Active Substance: SENNA LEAF\SENNOSIDES\SENNOSIDES A AND B
     Dosage: UNK UNK, UNKNOWN FREQ.
     Route: 065
  60. SENNA [Concomitant]
     Active Substance: SENNA LEAF\SENNOSIDES\SENNOSIDES A AND B
     Route: 048
  61. SENNA [Concomitant]
     Active Substance: SENNA LEAF\SENNOSIDES\SENNOSIDES A AND B
     Route: 048
  62. DEXTROSE [Concomitant]
     Active Substance: DEXTROSE
     Indication: Product used for unknown indication
     Dosage: UNK UNK, UNKNOWN FREQ.
     Route: 065
     Dates: start: 20180130
  63. GLUCOGEL [Concomitant]
     Indication: Product used for unknown indication
     Dosage: UNK UNK, UNKNOWN FREQ.
     Route: 065
  64. GLUCOGEL [Concomitant]
     Dosage: UNK UNK, UNKNOWN FREQ.
     Route: 065
     Dates: start: 20180130
  65. NITROGLYCERIN [Concomitant]
     Active Substance: NITROGLYCERIN
     Indication: Product used for unknown indication
     Dosage: UNK UNK, UNKNOWN FREQ.
  66. DOXYCYCLINE [Concomitant]
     Active Substance: DOXYCYCLINE
     Indication: Product used for unknown indication
     Dosage: UNK UNK, UNKNOWN FREQ.
     Route: 065
  67. DOXYCYCLINE [Concomitant]
     Active Substance: DOXYCYCLINE
     Route: 065
  68. GLUCAGON [Concomitant]
     Active Substance: GLUCAGON
     Indication: Product used for unknown indication
     Dosage: UNK UNK, UNKNOWN FREQ.
     Route: 030
     Dates: start: 20180130
  69. ALBUTEROL [Concomitant]
     Active Substance: ALBUTEROL
     Indication: Product used for unknown indication
     Dosage: UNK UNK, UNKNOWN FREQ.
     Route: 065
  70. BETAHISTINE [Concomitant]
     Active Substance: BETAHISTINE
     Indication: Product used for unknown indication
     Dosage: 8 MG, ONCE DAILY MORNING
     Route: 048
  71. BETAHISTINE [Concomitant]
     Active Substance: BETAHISTINE
     Route: 048
  72. ALFACALCIDOL [Concomitant]
     Active Substance: ALFACALCIDOL
     Indication: Product used for unknown indication
     Route: 048
  73. SENNOSIDES A AND B [Concomitant]
     Active Substance: SENNOSIDES A AND B
     Indication: Product used for unknown indication
     Dosage: UNK UNK, UNKNOWN FREQ.
     Route: 065
  74. CALCIUM CARBONATE [Concomitant]
     Active Substance: CALCIUM CARBONATE
     Indication: Product used for unknown indication
     Dosage: UNK UNK, UNKNOWN FREQ.
     Route: 048

REACTIONS (32)
  - Transplant failure [Fatal]
  - Acute kidney injury [Fatal]
  - Sepsis [Fatal]
  - Toxicity to various agents [Fatal]
  - Malaise [Fatal]
  - Rash [Fatal]
  - Hypoglycaemia [Fatal]
  - Haemoptysis [Unknown]
  - Oesophageal perforation [Fatal]
  - Rales [Fatal]
  - Pyrexia [Fatal]
  - Renal impairment [Fatal]
  - Soft tissue mass [Fatal]
  - Multimorbidity [Fatal]
  - Dysphagia [Fatal]
  - Inflammatory marker increased [Fatal]
  - Myocardial ischaemia [Fatal]
  - Superinfection [Fatal]
  - Pleural effusion [Fatal]
  - Cardiac failure congestive [Fatal]
  - Oesophageal carcinoma [Fatal]
  - Pneumonia [Fatal]
  - Lower respiratory tract infection [Unknown]
  - Cough [Fatal]
  - Ascites [Fatal]
  - Lung consolidation [Fatal]
  - Condition aggravated [Fatal]
  - Immunosuppressant drug level increased [Fatal]
  - Productive cough [Fatal]
  - Dyspnoea [Fatal]
  - Cardiomegaly [Fatal]
  - Labelled drug-drug interaction medication error [Unknown]

NARRATIVE: CASE EVENT DATE: 20180131
